FAERS Safety Report 12404107 (Version 1)
Quarter: 2016Q2

REPORT INFORMATION
  Report Type: Spontaneous
  Country: US (occurrence: US)
  Receive Date: 20160525
  Receipt Date: 20160525
  Transmission Date: 20160815
  Serious: No
  Sender: FDA-Public Use
  Company Number: US-SA-2015SA133957

PATIENT

DRUGS (2)
  1. OXALIPLATIN  WINTHROP [Suspect]
     Active Substance: OXALIPLATIN
     Dosage: STENGTH: 100 MG AND 50 MG.
     Route: 065
  2. OXALIPLATIN  WINTHROP [Suspect]
     Active Substance: OXALIPLATIN
     Dosage: STENGTH: 100 MG AND 50 MG.
     Route: 065

REACTIONS (1)
  - Respiratory disorder [Recovered/Resolved]
